FAERS Safety Report 10377678 (Version 3)
Quarter: 2014Q4

REPORT INFORMATION
  Report Type: Report from Study
  Country: JP (occurrence: JP)
  Receive Date: 20140812
  Receipt Date: 20141112
  Transmission Date: 20150528
  Serious: Yes (Hospitalization, Other)
  Sender: FDA-Public Use
  Company Number: PHHY2014JP019994

PATIENT
  Age: 34 Year
  Sex: Female

DRUGS (6)
  1. AMN107 [Suspect]
     Active Substance: NILOTINIB
     Dosage: 600 MG, DAILY
     Route: 048
     Dates: start: 20100712, end: 20110418
  2. URDESTON [Concomitant]
     Indication: CHRONIC HEPATITIS B
     Dosage: 300 MG, UNK
     Route: 048
  3. AMN107 [Suspect]
     Active Substance: NILOTINIB
     Indication: CHRONIC MYELOID LEUKAEMIA
     Dosage: 200 MG, BID
     Route: 048
     Dates: start: 20100402, end: 20100411
  4. AMN107 [Suspect]
     Active Substance: NILOTINIB
     Dosage: 200 MG, BID
     Route: 048
     Dates: start: 20100416, end: 20100507
  5. AMN107 [Suspect]
     Active Substance: NILOTINIB
     Dosage: 200 MG, BID
     Route: 048
     Dates: start: 20100604, end: 20100711
  6. AMN107 [Suspect]
     Active Substance: NILOTINIB
     Dosage: 800 MG, DAILY
     Route: 048
     Dates: start: 20110419, end: 20110701

REACTIONS (7)
  - Anaemia [Recovered/Resolved]
  - Hepatic function abnormal [Recovered/Resolved]
  - Hyperbilirubinaemia [Recovered/Resolved]
  - Rash [Recovered/Resolved]
  - White blood cell count decreased [Recovered/Resolved]
  - Platelet count decreased [Not Recovered/Not Resolved]
  - Electrocardiogram QT prolonged [Recovered/Resolved]

NARRATIVE: CASE EVENT DATE: 20100410
